FAERS Safety Report 22585662 (Version 1)
Quarter: 2023Q2

REPORT INFORMATION
  Report Type: Spontaneous
  Country: GR (occurrence: GR)
  Receive Date: 20230610
  Receipt Date: 20230610
  Transmission Date: 20230722
  Serious: Yes (Other)
  Sender: FDA-Public Use
  Company Number: GR-CELLTRION INC.-2023GR011856

PATIENT

DRUGS (5)
  1. INFLIXIMAB [Suspect]
     Active Substance: INFLIXIMAB
     Indication: Rheumatoid arthritis
     Dosage: 1 DOSAGE FORM, EVERY 1 WEEKS
     Route: 058
     Dates: start: 202304
  2. INFLIXIMAB [Suspect]
     Active Substance: INFLIXIMAB
     Dosage: ADDITIONAL SUBCUTANEOUS INJECTIONS AT 1 WEEK AFTER THE FIRST INJECTION
     Route: 058
  3. INFLIXIMAB [Suspect]
     Active Substance: INFLIXIMAB
     Dosage: ADDITIONAL SUBCUTANEOUS INJECTIONS AT 2 WEEKS AFTER THE FIRST INJECTION
     Route: 058
  4. INFLIXIMAB [Suspect]
     Active Substance: INFLIXIMAB
     Dosage: ADDITIONAL SUBCUTANEOUS INJECTIONS AT 3 WEEKS AFTER THE FIRST INJECTION
     Route: 058
  5. INFLIXIMAB [Suspect]
     Active Substance: INFLIXIMAB
     Dosage: ADDITIONAL SUBCUTANEOUS INJECTIONS AT 4 WEEKS AFTER THE FIRST INJECTION
     Route: 058

REACTIONS (2)
  - Rheumatoid arthritis [Unknown]
  - Intentional product use issue [Unknown]
